FAERS Safety Report 6422486-3 (Version None)
Quarter: 2009Q4

REPORT INFORMATION
  Report Type: 
  Country: None (occurrence: None)
  Receive Date: 20091030
  Receipt Date: 20091023
  Transmission Date: 20100525
  Serious: Yes (Other)
  Sender: FDA-Public Use
  Company Number: JP-MERCK-0910USA00776

PATIENT
  Age: 65 Year
  Sex: Female

DRUGS (2)
  1. PEPCID RPD [Suspect]
     Route: 048
     Dates: start: 20070901, end: 20071001
  2. PEPCID [Concomitant]
     Route: 065
     Dates: start: 20070901, end: 20070901

REACTIONS (2)
  - ERYTHEMA MULTIFORME [None]
  - LIVER DISORDER [None]
